FAERS Safety Report 6490902-7 (Version None)
Quarter: 2009Q4

REPORT INFORMATION
  Report Type: 
  Country: None (occurrence: None)
  Receive Date: 20091211
  Receipt Date: 20091203
  Transmission Date: 20100525
  Serious: Yes (Death)
  Sender: FDA-Public Use
  Company Number: US-WATSON-2009-10375

PATIENT
  Sex: Female

DRUGS (11)
  1. ESTRADIOL (WATSON LABORATORIES) [Suspect]
     Indication: HORMONE REPLACEMENT THERAPY
     Dosage: UNK
     Route: 065
  2. MEDROXYPROGESTERONE ACETATE [Suspect]
     Indication: HORMONE THERAPY
     Dosage: UNK
     Route: 065
  3. PREMARIN [Suspect]
     Indication: HORMONE THERAPY
     Dosage: UNK
     Route: 065
  4. CYCRIN [Suspect]
     Indication: HORMONE THERAPY
     Dosage: UNK
     Route: 065
  5. AYGESTIN [Suspect]
     Indication: HORMONE THERAPY
     Dosage: UNK
     Route: 065
  6. PREMPRO [Suspect]
     Indication: HORMONE THERAPY
     Dosage: UNK
     Route: 065
  7. PREMPHASE 14/14 [Suspect]
     Indication: HORMONE THERAPY
     Dosage: UNK
     Route: 065
  8. PROVERA [Suspect]
     Indication: HORMONE THERAPY
     Dosage: UNK
     Route: 065
  9. FEMHRT [Suspect]
     Indication: HORMONE THERAPY
     Dosage: UNK
     Route: 065
  10. VAGIFEM [Suspect]
     Indication: HORMONE THERAPY
     Dosage: UNK
     Route: 065
  11. ACTIVELLA                          /00686201/ [Suspect]
     Indication: HORMONE THERAPY
     Dosage: UNK
     Route: 065

REACTIONS (1)
  - DEATH [None]
